FAERS Safety Report 5905745-X (Version None)
Quarter: 2008Q4

REPORT INFORMATION
  Report Type: 
  Country: None (occurrence: None)
  Receive Date: 20081002
  Receipt Date: 20080926
  Transmission Date: 20090506
  Serious: No
  Sender: FDA-Public Use
  Company Number: US-ASTRAZENECA-2008UW20657

PATIENT
  Age: 60 Year
  Sex: Female
  Weight: 49.9 kg

DRUGS (6)
  1. PRILOSEC [Suspect]
     Indication: GASTROOESOPHAGEAL REFLUX DISEASE
     Route: 048
  2. CRESTOR [Concomitant]
  3. PAXIL [Concomitant]
  4. PREMARIN 3X WEEK [Concomitant]
  5. MUCINEX [Concomitant]
  6. FOSAMAX WEEKLY [Concomitant]

REACTIONS (1)
  - DRUG INEFFECTIVE [None]
